FAERS Safety Report 10005844 (Version 1)
Quarter: 2014Q1

REPORT INFORMATION
  Report Type: Spontaneous
  Country: AU (occurrence: AU)
  Receive Date: 20140313
  Receipt Date: 20140313
  Transmission Date: 20141002
  Serious: Yes (Other)
  Sender: FDA-Public Use
  Company Number: AU-009507513-1403AUS003209

PATIENT
  Age: 39 Year
  Sex: Female

DRUGS (2)
  1. IMPLANON [Suspect]
     Indication: CONTRACEPTION
     Dosage: LEFT ARM
     Route: 058
     Dates: start: 20110202
  2. IMPLANON [Suspect]
     Dosage: UNK
     Route: 058

REACTIONS (4)
  - Device deployment issue [Not Recovered/Not Resolved]
  - Complication of device removal [Not Recovered/Not Resolved]
  - Fear [Not Recovered/Not Resolved]
  - Incorrect drug administration duration [Unknown]
